FAERS Safety Report 16943954 (Version 6)
Quarter: 2020Q4

REPORT INFORMATION
  Report Type: Spontaneous
  Country: PT (occurrence: PT)
  Receive Date: 20191022
  Receipt Date: 20201021
  Transmission Date: 20210113
  Serious: Yes (Hospitalization, Other)
  Sender: FDA-Public Use
  Company Number: PT-AUROBINDO-AUR-APL-2019-066293

PATIENT
  Age: 82 Year
  Sex: Male

DRUGS (8)
  1. DILTIAZEM. [Suspect]
     Active Substance: DILTIAZEM
     Indication: HYPERTENSION
     Dosage: UNK
     Route: 065
  2. HYDROCHLOROTHIAZIDE. [Suspect]
     Active Substance: HYDROCHLOROTHIAZIDE
     Indication: HYPERTENSION
     Dosage: 12.5 MILLIGRAM
     Route: 065
  3. OLMESARTAN [Suspect]
     Active Substance: OLMESARTAN
     Indication: HYPERTENSION
     Dosage: 20 MILLIGRAM
     Route: 065
  4. PRAVASTATIN. [Suspect]
     Active Substance: PRAVASTATIN
     Dosage: UNK
  5. OLMESARTAN MEDOXOMIL+HYDROCHLOROTHIAZIDE GENERIS 20/12.5MG [Suspect]
     Active Substance: HYDROCHLOROTHIAZIDE\OLMESARTAN MEDOXOMIL
     Dosage: UNK
     Route: 065
  6. PRAVASTATIN. [Suspect]
     Active Substance: PRAVASTATIN
     Indication: DYSLIPIDAEMIA
     Dosage: 40 MILLIGRAM, DAILY
     Route: 048
  7. DILTIAZEM. [Suspect]
     Active Substance: DILTIAZEM
     Indication: DYSLIPIDAEMIA
     Dosage: 200 MILLIGRAM, DAILY
     Route: 048
  8. OLMESARTAN MEDOXOMIL+HYDROCHLOROTHIAZIDE GENERIS 20/12.5MG [Suspect]
     Active Substance: HYDROCHLOROTHIAZIDE\OLMESARTAN MEDOXOMIL
     Indication: HYPERTENSION
     Dosage: 1 DOSAGE FORM IS COMPOSED BY 20MG OF OLMESARTNA WITH 12,5 MG OF HYDROCHLOROTIAZIDE
     Route: 048

REACTIONS (12)
  - Syncope [Recovered/Resolved]
  - Coeliac disease [Unknown]
  - Diarrhoea [Recovered/Resolved]
  - Gastrointestinal disorder [Recovered/Resolved]
  - Sprue-like enteropathy [Recovered/Resolved]
  - Weight decreased [Recovered/Resolved]
  - Hypomagnesaemia [Recovered/Resolved]
  - Hypokalaemia [Recovered/Resolved]
  - Hypoalbuminaemia [Recovered/Resolved]
  - Dehydration [Recovered/Resolved]
  - Acute kidney injury [Recovered/Resolved]
  - Fatigue [Recovered/Resolved]
